FAERS Safety Report 15551781 (Version 1)
Quarter: 2018Q4

REPORT INFORMATION
  Report Type: Report from Study
  Country: BR (occurrence: BR)
  Receive Date: 20181025
  Receipt Date: 20181025
  Transmission Date: 20190205
  Serious: Yes (Hospitalization)
  Sender: FDA-Public Use
  Company Number: BR-BIOGEN-2016BI00200886

PATIENT
  Age: 33 Year
  Sex: Female
  Weight: 57.7 kg

DRUGS (2)
  1. DACLIZUMAB HYP [Suspect]
     Active Substance: DACLIZUMAB
     Indication: MULTIPLE SCLEROSIS
     Route: 058
     Dates: start: 20140306, end: 20160303
  2. DACLIZUMAB HYP [Suspect]
     Active Substance: DACLIZUMAB
     Route: 058
     Dates: start: 20160530

REACTIONS (1)
  - Pancreatitis [Recovered/Resolved]

NARRATIVE: CASE EVENT DATE: 20160303
